FAERS Safety Report 10668336 (Version 2)
Quarter: 2014Q4

REPORT INFORMATION
  Report Type: Spontaneous
  Country: IT (occurrence: IT)
  Receive Date: 20141222
  Receipt Date: 20141229
  Transmission Date: 20150529
  Serious: Yes (Death)
  Sender: FDA-Public Use
  Company Number: IT-TEVA-529930ISR

PATIENT
  Age: 53 Year
  Sex: Female

DRUGS (3)
  1. CALCIO LEVOFOLINATO TEVA [Concomitant]
     Active Substance: LEUCOVORIN CALCIUM
     Route: 042
     Dates: start: 20141020, end: 20141110
  2. IRINOTECAN HOSPITAL [Suspect]
     Active Substance: IRINOTECAN
     Indication: ADENOCARCINOMA OF COLON
     Dosage: 186.3 MILLIGRAM DAILY;
     Route: 042
     Dates: start: 20141110, end: 20141110
  3. FLUOROURACILE TEVA [Suspect]
     Active Substance: FLUOROURACIL
     Indication: ADENOCARCINOMA OF COLON
     Dosage: 4077 MILLIGRAM DAILY;
     Route: 040
     Dates: start: 20141020, end: 20141110

REACTIONS (6)
  - Diarrhoea [Fatal]
  - Pancytopenia [Fatal]
  - Mucosal inflammation [Fatal]
  - Septic shock [Fatal]
  - Leukopenia [Fatal]
  - Neutropenia [Fatal]

NARRATIVE: CASE EVENT DATE: 20141112
